FAERS Safety Report 9671462 (Version 1)
Quarter: 2013Q4

REPORT INFORMATION
  Report Type: Spontaneous
  Country: FR (occurrence: FR)
  Receive Date: 20131106
  Receipt Date: 20131106
  Transmission Date: 20140711
  Serious: Yes (Hospitalization)
  Sender: FDA-Public Use
  Company Number: FR-B.I. PHARMACEUTICALS,INC./RIDGEFIELD-2013-BI-35967YA

PATIENT
  Age: 69 Year
  Sex: Male

DRUGS (8)
  1. TAMSULOSINA [Suspect]
     Indication: PRODUCT USED FOR UNKNOWN INDICATION
     Route: 065
     Dates: start: 20130617
  2. TACROLIMUS [Suspect]
     Indication: PROPHYLAXIS AGAINST TRANSPLANT REJECTION
     Route: 065
     Dates: start: 20130803
  3. CELLCEPT [Concomitant]
     Dates: start: 20130613
  4. INEXIUM [Concomitant]
     Dates: start: 20130614
  5. COUMADINE (ESOMEPRAZOLE MAGNESIUM) [Concomitant]
     Dates: start: 20130705
  6. DUPHALAC [Concomitant]
     Dates: start: 20130902
  7. TADENAN (PRUNUS AFRICANA EXTRACT) [Concomitant]
     Dates: start: 20130905
  8. LASILIX [Concomitant]
     Dates: start: 20130913

REACTIONS (1)
  - Cardiac failure [Not Recovered/Not Resolved]
